FAERS Safety Report 9984162 (Version 1)
Quarter: 2014Q1

REPORT INFORMATION
  Report Type: Spontaneous
  Country: US (occurrence: US)
  Receive Date: 20140307
  Receipt Date: 20140307
  Transmission Date: 20141002
  Serious: No
  Sender: FDA-Public Use
  Company Number: US-ABBVIE-13P-163-1182362-00

PATIENT
  Sex: Female
  Weight: 88.98 kg

DRUGS (6)
  1. HUMIRA [Suspect]
     Indication: CROHN^S DISEASE
     Dates: start: 20130616
  2. ASACOL [Concomitant]
     Indication: CROHN^S DISEASE
  3. LIBRIUM [Concomitant]
     Indication: CROHN^S DISEASE
  4. LISINOPRIL [Concomitant]
     Indication: HYPERTENSION
  5. HYDROCHLOROTHIAZIDE [Concomitant]
     Indication: HYPERTENSION
  6. AZATHIOPRINE [Concomitant]
     Indication: CROHN^S DISEASE

REACTIONS (1)
  - Myalgia [Recovered/Resolved]
